FAERS Safety Report 18258562 (Version 12)
Quarter: 2022Q2

REPORT INFORMATION
  Report Type: Report from Study
  Country: JP (occurrence: JP)
  Receive Date: 20200911
  Receipt Date: 20220423
  Transmission Date: 20220720
  Serious: Yes (Hospitalization)
  Sender: FDA-Public Use
  Company Number: JP-ABBVIE-20K-087-3547117-00

PATIENT
  Age: 65 Year
  Sex: Female

DRUGS (2)
  1. CARBIDOPA\LEVODOPA [Suspect]
     Active Substance: CARBIDOPA\LEVODOPA
     Indication: Parkinson^s disease
     Route: 050
     Dates: start: 20200811
  2. CARBIDOPA\LEVODOPA [Suspect]
     Active Substance: CARBIDOPA\LEVODOPA
     Dosage: DOSE INCREASED
     Route: 050

REACTIONS (14)
  - Cardiac failure chronic [Unknown]
  - Mobility decreased [Unknown]
  - Dysstasia [Unknown]
  - Gait disturbance [Unknown]
  - Subileus [Unknown]
  - Stoma site pain [Unknown]
  - Stoma site erythema [Unknown]
  - Stoma site induration [Unknown]
  - Stoma site discharge [Unknown]
  - Therapeutic product effect decreased [Unknown]
  - Stoma site extravasation [Recovered/Resolved]
  - Stoma site extravasation [Unknown]
  - Device connection issue [Unknown]
  - Therapeutic product effect incomplete [Unknown]

NARRATIVE: CASE EVENT DATE: 20200101
